FAERS Safety Report 11936189 (Version 1)
Quarter: 2016Q1

REPORT INFORMATION
  Report Type: Report from Study
  Country: US (occurrence: US)
  Receive Date: 20160121
  Receipt Date: 20160121
  Transmission Date: 20160526
  Serious: Yes (Other)
  Sender: FDA-Public Use
  Company Number: US-AMGEN-USASL2015120987

PATIENT
  Age: 57 Year
  Sex: Male

DRUGS (2)
  1. KYPROLIS [Suspect]
     Active Substance: CARFILZOMIB
     Dosage: TWICE A WEEK WITH ONE WEEK OFF A MONTH
     Route: 065
  2. KYPROLIS [Suspect]
     Active Substance: CARFILZOMIB
     Indication: PRODUCT USED FOR UNKNOWN INDICATION
     Dosage: UNK
     Route: 065

REACTIONS (10)
  - Dyspnoea [Not Recovered/Not Resolved]
  - Thrombosis [Unknown]
  - Cardiomegaly [Unknown]
  - Peripheral swelling [Not Recovered/Not Resolved]
  - Stress [Unknown]
  - Intervertebral disc disorder [Unknown]
  - Central venous catheterisation [Unknown]
  - Skin discolouration [Unknown]
  - Hypoacusis [Not Recovered/Not Resolved]
  - Back disorder [Unknown]

NARRATIVE: CASE EVENT DATE: 2015
